FAERS Safety Report 23810974 (Version 2)
Quarter: 2024Q2

REPORT INFORMATION
  Report Type: Spontaneous
  Country: ES (occurrence: ES)
  Receive Date: 20240502
  Receipt Date: 20240517
  Transmission Date: 20240716
  Serious: Yes (Other)
  Sender: FDA-Public Use
  Company Number: ES-JAZZ PHARMACEUTICALS-2024-ES-006833

PATIENT

DRUGS (6)
  1. CANNABIDIOL [Suspect]
     Active Substance: CANNABIDIOL
     Indication: Rett syndrome
     Dosage: 3 MILLIGRAM/KILOGRAM
     Dates: start: 20230615, end: 20231201
  2. CANNABIDIOL [Suspect]
     Active Substance: CANNABIDIOL
     Dosage: 1 MILLIGRAM
     Dates: start: 20230615, end: 20231201
  3. VALPROATE [Concomitant]
     Active Substance: VALPROIC ACID
  4. BRIVIACT [Concomitant]
     Active Substance: BRIVARACETAM
  5. CLOBAZAM [Concomitant]
     Active Substance: CLOBAZAM
  6. PERAMPANEL [Concomitant]
     Active Substance: PERAMPANEL

REACTIONS (2)
  - Impaired gastric emptying [Recovered/Resolved]
  - Off label use [Unknown]

NARRATIVE: CASE EVENT DATE: 20231101
